FAERS Safety Report 6129972-4 (Version None)
Quarter: 2009Q1

REPORT INFORMATION
  Report Type: 
  Country: None (occurrence: None)
  Receive Date: 20090323
  Receipt Date: 20090323
  Transmission Date: 20090719
  Serious: No
  Sender: FDA-Public Use
  Company Number: None

PATIENT
  Sex: Male
  Weight: 68.9467 kg

DRUGS (1)
  1. PROPECIA [Suspect]
     Indication: ALOPECIA
     Dosage: 1MG ONCE/DAILY PO
     Route: 048
     Dates: start: 20071015, end: 20090321

REACTIONS (3)
  - ERECTILE DYSFUNCTION [None]
  - LIBIDO DECREASED [None]
  - SEMEN VOLUME DECREASED [None]
